FAERS Safety Report 7380095-6 (Version None)
Quarter: 2011Q1

REPORT INFORMATION
  Report Type: 
  Country: None (occurrence: None)
  Receive Date: 20110318
  Receipt Date: 20110307
  Transmission Date: 20110831
  Serious: Yes (Hospitalization)
  Sender: FDA-Public Use
  Company Number: 2011-0710

PATIENT
  Age: 50 Year
  Sex: Female

DRUGS (1)
  1. APO-GO (AMPOULES (APO-GO) (APOMORPHINE HYDROCHLORIDE) (APOMORPHINE HYD [Suspect]
     Indication: PRODUCT USED FOR UNKNOWN INDICATION
     Dosage: PARENTERAL
     Route: 051
     Dates: start: 20110225, end: 20110307

REACTIONS (2)
  - INJECTION SITE REACTION [None]
  - DERMATITIS ALLERGIC [None]
